FAERS Safety Report 11517469 (Version 1)
Quarter: 2015Q3

REPORT INFORMATION
  Report Type: Spontaneous
  Country: US (occurrence: None)
  Receive Date: 20150916
  Receipt Date: 20150916
  Transmission Date: 20151125
  Serious: Yes (Disabling, Other)
  Sender: FDA-Public Use
  Company Number: None

PATIENT
  Age: 48 Year
  Sex: Female
  Weight: 86.18 kg

DRUGS (1)
  1. CIPRO [Suspect]
     Active Substance: CIPROFLOXACIN HYDROCHLORIDE
     Indication: URINARY TRACT INFECTION
     Route: 048

REACTIONS (7)
  - Abdominal pain upper [None]
  - Loss of consciousness [None]
  - Neuropathy peripheral [None]
  - Meniscus injury [None]
  - Fibromyalgia [None]
  - Connective tissue disorder [None]
  - Rotator cuff syndrome [None]

NARRATIVE: CASE EVENT DATE: 20070915
